FAERS Safety Report 24275709 (Version 9)
Quarter: 2025Q4

REPORT INFORMATION
  Report Type: Spontaneous
  Country: US (occurrence: US)
  Receive Date: 20240903
  Receipt Date: 20251124
  Transmission Date: 20260117
  Serious: Yes (Hospitalization, Other)
  Sender: MDD OPERATIONS
  Company Number: US-MDD US Operations-MDD202408-003140

PATIENT
  Age: 58 Year
  Sex: Female
  Weight: 77.11 kg

DRUGS (8)
  1. APOKYN [Suspect]
     Active Substance: APOMORPHINE HYDROCHLORIDE
     Indication: Parkinson^s disease
     Route: 058
     Dates: start: 202309
  2. APOKYN [Suspect]
     Active Substance: APOMORPHINE HYDROCHLORIDE
  3. APOKYN [Suspect]
     Active Substance: APOMORPHINE HYDROCHLORIDE
     Dosage: 15M
  4. APOKYN [Suspect]
     Active Substance: APOMORPHINE HYDROCHLORIDE
     Dosage: INJECT 0.5ML (5MG) UNDER THE SKIN FIVE TIMES A DAY (3ML CARTRIDGE 1 EA CART)
     Route: 058
     Dates: start: 20230629
  5. ONAPGO [Suspect]
     Active Substance: APOMORPHINE HYDROCHLORIDE
     Indication: Parkinson^s disease
     Dosage: PER HOUR
  6. ONAPGO [Suspect]
     Active Substance: APOMORPHINE HYDROCHLORIDE
     Dosage: 5MG PER HOUR
     Dates: start: 2025
  7. ONAPGO [Suspect]
     Active Substance: APOMORPHINE HYDROCHLORIDE
     Dosage: FOR ABOUT 15 TO 16 HOURS
  8. LIDOCAINE [Suspect]
     Active Substance: LIDOCAINE
     Indication: Wound
     Dosage: NOT PROVIDED

REACTIONS (11)
  - Head injury [Unknown]
  - Muscle spasms [Not Recovered/Not Resolved]
  - Ankle fracture [Unknown]
  - Gait inability [Unknown]
  - Hypertension [Not Recovered/Not Resolved]
  - Foot fracture [Recovered/Resolved]
  - Fall [Recovered/Resolved]
  - Pruritus [Not Recovered/Not Resolved]
  - Headache [Not Recovered/Not Resolved]
  - Nausea [Recovered/Resolved]
  - Device physical property issue [Unknown]

NARRATIVE: CASE EVENT DATE: 20240101
